FAERS Safety Report 20863799 (Version 3)
Quarter: 2022Q4

REPORT INFORMATION
  Report Type: Report from Study
  Country: US (occurrence: US)
  Receive Date: 20220523
  Receipt Date: 20221103
  Transmission Date: 20230113
  Serious: No
  Sender: FDA-Public Use
  Company Number: US-SANOFI-01110539

PATIENT
  Age: 42 Year
  Sex: Female

DRUGS (2)
  1. DUPILUMAB [Suspect]
     Active Substance: DUPILUMAB
     Indication: Asthma
     Dosage: 600 MG, 1X
     Route: 058
     Dates: start: 20220322, end: 20220322
  2. DUPILUMAB [Suspect]
     Active Substance: DUPILUMAB
     Dosage: 300 MG, QOW
     Route: 058

REACTIONS (7)
  - Injection site discolouration [Unknown]
  - Injection site swelling [Not Recovered/Not Resolved]
  - Pigmentation disorder [Unknown]
  - Oedema peripheral [Unknown]
  - Skin hyperpigmentation [Not Recovered/Not Resolved]
  - Swelling [Recovering/Resolving]
  - Skin hyperpigmentation [Recovering/Resolving]
